FAERS Safety Report 5341734-4 (Version None)
Quarter: 2007Q2

REPORT INFORMATION
  Report Type: 
  Country: None (occurrence: None)
  Receive Date: 20070529
  Receipt Date: 20070529
  Transmission Date: 20071010
  Serious: Yes (Other)
  Sender: FDA-Public Use
  Company Number: None

PATIENT
  Age: 42 Year
  Sex: Female
  Weight: 41.7309 kg

DRUGS (2)
  1. DEPO-PROVERA [Suspect]
     Indication: ANAEMIA
     Dosage: 1 INJECTION EVERY 3 MONTHS SQ
     Route: 058
     Dates: start: 20031101, end: 20061101
  2. DEPO-PROVERA [Suspect]
     Indication: DYSMENORRHOEA
     Dosage: 1 INJECTION EVERY 3 MONTHS SQ
     Route: 058
     Dates: start: 20031101, end: 20061101

REACTIONS (6)
  - DIABETES MELLITUS [None]
  - HEADACHE [None]
  - HYPERSENSITIVITY [None]
  - LETHARGY [None]
  - ONYCHOMYCOSIS [None]
  - PAIN [None]
